FAERS Safety Report 24987912 (Version 3)
Quarter: 2025Q1

REPORT INFORMATION
  Report Type: Report from Study
  Country: US (occurrence: US)
  Receive Date: 20250219
  Receipt Date: 20250226
  Transmission Date: 20250409
  Serious: No
  Sender: JAZZ
  Company Number: US-JAZZ PHARMACEUTICALS-2025-US-004223

PATIENT
  Age: 1 Year
  Sex: Female

DRUGS (8)
  1. EPIDIOLEX [Suspect]
     Active Substance: CANNABIDIOL
     Indication: Partial seizures
     Dosage: 1.2 MILLILITER, BID
     Route: 048
     Dates: start: 20250122
  2. EPIDIOLEX [Suspect]
     Active Substance: CANNABIDIOL
     Indication: Seizure
  3. CHILDRENS MOTRIN [Concomitant]
     Active Substance: IBUPROFEN
  4. CHILDRENS TYLENOL [Concomitant]
     Active Substance: ACETAMINOPHEN
  5. CLOBAZAM [Concomitant]
     Active Substance: CLOBAZAM
  6. DIAZEPAM [Concomitant]
     Active Substance: DIAZEPAM
     Indication: Product used for unknown indication
     Route: 054
  7. LEVETIRACETAM [Concomitant]
     Active Substance: LEVETIRACETAM
  8. OXCARBAZEPINE [Concomitant]
     Active Substance: OXCARBAZEPINE
     Route: 048

REACTIONS (2)
  - Balance disorder [Not Recovered/Not Resolved]
  - Influenza [Not Recovered/Not Resolved]

NARRATIVE: CASE EVENT DATE: 20250101
